FAERS Safety Report 18532253 (Version 1)
Quarter: 2020Q4

REPORT INFORMATION
  Report Type: Spontaneous
  Country: US (occurrence: US)
  Receive Date: 20201123
  Receipt Date: 20201123
  Transmission Date: 20210114
  Serious: Yes (Other)
  Sender: FDA-Public Use
  Company Number: US-AUROBINDO-AUR-APL-2013-01212

PATIENT
  Age: 66 Year
  Sex: Female

DRUGS (18)
  1. IFOSFAMIDE. [Suspect]
     Active Substance: IFOSFAMIDE
     Indication: CHEMOTHERAPY
     Dosage: UNK
     Route: 065
  2. PREDNISONE. [Concomitant]
     Active Substance: PREDNISONE
     Indication: NON-HODGKIN^S LYMPHOMA
     Dosage: UNK
     Route: 065
  3. PAROXETINE TABLETS USP 10MG [Suspect]
     Active Substance: PAROXETINE
     Indication: PRODUCT USED FOR UNKNOWN INDICATION
     Dosage: UNK
     Route: 065
  4. METHYLENE BLUE. [Interacting]
     Active Substance: METHYLENE BLUE
     Indication: ENCEPHALOPATHY
     Dosage: .7 MG/KG,FOUR HOURLY,
     Route: 042
  5. IFOSFAMIDE. [Suspect]
     Active Substance: IFOSFAMIDE
     Indication: NON-HODGKIN^S LYMPHOMA RECURRENT
  6. CARBOPLATIN. [Concomitant]
     Active Substance: CARBOPLATIN
     Indication: NON-HODGKIN^S LYMPHOMA RECURRENT
  7. ETOPOSIDE. [Concomitant]
     Active Substance: ETOPOSIDE
     Indication: CHEMOTHERAPY
     Dosage: UNK
     Route: 065
  8. DEXAMETHASONE. [Concomitant]
     Active Substance: DEXAMETHASONE
     Indication: ANTIEMETIC SUPPORTIVE CARE
  9. DOXORUBICIN [Concomitant]
     Active Substance: DOXORUBICIN
     Indication: NON-HODGKIN^S LYMPHOMA
     Dosage: UNK
     Route: 065
  10. VINCRISTINE [Concomitant]
     Active Substance: VINCRISTINE
     Indication: NON-HODGKIN^S LYMPHOMA
     Dosage: UNK
     Route: 065
  11. METHYLENE BLUE. [Interacting]
     Active Substance: METHYLENE BLUE
     Indication: CHEMOTHERAPY
  12. BUPROPION. [Concomitant]
     Active Substance: BUPROPION
     Indication: PRODUCT USED FOR UNKNOWN INDICATION
     Dosage: UNK
     Route: 065
  13. METHYLTHIONINIUM CHLORIDE [Suspect]
     Active Substance: METHYLENE BLUE
     Indication: ENCEPHALOPATHY
     Dosage: 50MG (0.7MG/KG) EVERY 4H
     Route: 042
  14. CYCLOPHOSPHAMIDE. [Concomitant]
     Active Substance: CYCLOPHOSPHAMIDE
     Indication: NON-HODGKIN^S LYMPHOMA
     Dosage: UNK
     Route: 065
  15. CARBOPLATIN. [Concomitant]
     Active Substance: CARBOPLATIN
     Indication: CHEMOTHERAPY
     Dosage: UNK
     Route: 065
  16. DEXAMETHASONE. [Concomitant]
     Active Substance: DEXAMETHASONE
     Indication: VOMITING
     Dosage: UNK UNK,UNK,
     Route: 065
  17. ETOPOSIDE. [Concomitant]
     Active Substance: ETOPOSIDE
     Indication: NON-HODGKIN^S LYMPHOMA RECURRENT
  18. APREPITANT. [Concomitant]
     Active Substance: APREPITANT
     Indication: PRODUCT USED FOR UNKNOWN INDICATION
     Dosage: UNK
     Route: 065

REACTIONS (25)
  - Acidosis [Unknown]
  - Blood urea increased [Recovered/Resolved]
  - Aspiration [Unknown]
  - Alanine aminotransferase increased [Recovered/Resolved]
  - Dyskinesia [Unknown]
  - Hyperreflexia [Unknown]
  - Hypoxia [Unknown]
  - Pleural effusion [Unknown]
  - Encephalopathy [Unknown]
  - Agitation [Unknown]
  - Tachycardia [Unknown]
  - Infection [Unknown]
  - Blood creatinine increased [Recovered/Resolved]
  - Lethargy [Unknown]
  - Aspartate aminotransferase increased [Recovered/Resolved]
  - Mydriasis [Unknown]
  - Unresponsive to stimuli [Unknown]
  - Tachypnoea [Unknown]
  - Communication disorder [Unknown]
  - Mental status changes [Recovered/Resolved]
  - Pulmonary oedema [Unknown]
  - Delirium [Unknown]
  - Deep vein thrombosis [Unknown]
  - Drug interaction [Unknown]
  - Serotonin syndrome [Unknown]
